FAERS Safety Report 7081647-3 (Version None)
Quarter: 2010Q4

REPORT INFORMATION
  Report Type: 
  Country: None (occurrence: None)
  Receive Date: 20101103
  Receipt Date: 20101029
  Transmission Date: 20110411
  Serious: Yes (Life-Threatening, Hospitalization)
  Sender: FDA-Public Use
  Company Number: PHHY2010JP64667

PATIENT
  Sex: Male
  Weight: 80 kg

DRUGS (2)
  1. GLEEVEC [Suspect]
     Indication: CHRONIC MYELOID LEUKAEMIA
     Route: 048
  2. HEPARIN [Concomitant]

REACTIONS (8)
  - ANTIPHOSPHOLIPID SYNDROME [None]
  - LYMPHOCYTE COUNT DECREASED [None]
  - NEUTROPHIL COUNT INCREASED [None]
  - PULMONARY EMBOLISM [None]
  - RESPIRATORY DISTRESS [None]
  - SURGERY [None]
  - THROMBECTOMY [None]
  - WHITE BLOOD CELL ANALYSIS INCREASED [None]
